FAERS Safety Report 16422101 (Version 2)
Quarter: 2020Q2

REPORT INFORMATION
  Report Type: Spontaneous
  Country: US (occurrence: US)
  Receive Date: 20190612
  Receipt Date: 20200612
  Transmission Date: 20200713
  Serious: No
  Sender: FDA-Public Use
  Company Number: US-PERRIGO-19US004015

PATIENT
  Age: 32 Year
  Sex: Female
  Weight: 59.41 kg

DRUGS (3)
  1. MINOXIDIL. [Suspect]
     Active Substance: MINOXIDIL
     Dosage: MORE THAN 1/2 CAPFUL, TWICE A WEEK
     Route: 061
     Dates: start: 201901, end: 201901
  2. MINOXIDIL. [Suspect]
     Active Substance: MINOXIDIL
     Dosage: MORE THAN 1/2 CAPFUL, QD
     Route: 061
     Dates: start: 20190204, end: 20190322
  3. PRENATAL VITAMINS                  /07499601/ [Concomitant]
     Active Substance: VITAMINS
     Indication: PREGNANCY
     Dosage: UNK
     Route: 065
     Dates: start: 201902

REACTIONS (5)
  - Incorrect dose administered [Recovered/Resolved]
  - Product administered at inappropriate site [Recovered/Resolved]
  - Maternal exposure during pregnancy [Recovered/Resolved]
  - Inappropriate schedule of product administration [Recovered/Resolved]
  - Normal newborn [Recovered/Resolved]

NARRATIVE: CASE EVENT DATE: 2019
